FAERS Safety Report 18917168 (Version 3)
Quarter: 2021Q4

REPORT INFORMATION
  Report Type: Report from Study
  Country: JP (occurrence: JP)
  Receive Date: 20210219
  Receipt Date: 20211208
  Transmission Date: 20220304
  Serious: Yes (Hospitalization)
  Sender: FDA-Public Use
  Company Number: JP-ABBVIE-21K-087-3780903-00

PATIENT
  Age: 43 Year
  Sex: Male
  Weight: 54 kg

DRUGS (9)
  1. CARBIDOPA\LEVODOPA [Suspect]
     Active Substance: CARBIDOPA\LEVODOPA
     Indication: Parkinson^s disease
     Dosage: MD: 8 ML, CD: 4.2 ML/HR X 16 HR
     Route: 050
     Dates: start: 20170818, end: 20170829
  2. CARBIDOPA\LEVODOPA [Suspect]
     Active Substance: CARBIDOPA\LEVODOPA
     Dosage: MD: 11 ML, CD: 4.0 ML/HR X 16 HR, ED: 1 ML/UNIT X 1
     Route: 050
     Dates: start: 20170829, end: 20170904
  3. CARBIDOPA\LEVODOPA [Suspect]
     Active Substance: CARBIDOPA\LEVODOPA
     Dosage: MD: 11 ML, CD: 3.8 ML/HR X 16 HR, ED: 1.5 ML/UNIT X 1
     Route: 050
     Dates: start: 20170905, end: 20170918
  4. CARBIDOPA\LEVODOPA [Suspect]
     Active Substance: CARBIDOPA\LEVODOPA
     Dosage: MD: 11 ML, CD: 4.0 ML/HR X 16 HR, ED: 1.5 ML/UNIT X 1
     Route: 050
     Dates: start: 20170919, end: 20171006
  5. ROTIGOTINE [Concomitant]
     Active Substance: ROTIGOTINE
     Indication: Parkinson^s disease
     Route: 062
  6. ETIZOLAM [Concomitant]
     Active Substance: ETIZOLAM
     Indication: Parkinson^s disease
     Route: 048
  7. RAMELTEON [Concomitant]
     Active Substance: RAMELTEON
     Indication: Product used for unknown indication
     Route: 048
  8. ZOLPIDEM TARTRATE [Concomitant]
     Active Substance: ZOLPIDEM TARTRATE
     Indication: Product used for unknown indication
     Route: 048
  9. METHYLCOBALAMIN [Concomitant]
     Active Substance: METHYLCOBALAMIN
     Indication: Product used for unknown indication
     Route: 048
     Dates: start: 20210818

REACTIONS (8)
  - Nasopharyngitis [Unknown]
  - Stoma site pain [Recovering/Resolving]
  - Inflammation [Recovering/Resolving]
  - Stoma site hypergranulation [Unknown]
  - Therapeutic product effect decreased [Unknown]
  - Stoma site pain [Unknown]
  - Chronic gastritis [Recovering/Resolving]
  - Stoma site erythema [Unknown]

NARRATIVE: CASE EVENT DATE: 20170818
